FAERS Safety Report 5241248-6 (Version None)
Quarter: 2007Q1

REPORT INFORMATION
  Report Type: 
  Country: None (occurrence: None)
  Receive Date: 20070220
  Receipt Date: 20070208
  Transmission Date: 20070707
  Serious: Yes (Hospitalization)
  Sender: FDA-Public Use
  Company Number: JP-BRISTOL-MYERS SQUIBB COMPANY-13679105

PATIENT
  Age: 62 Year
  Sex: Female

DRUGS (1)
  1. GATIFLO [Suspect]
     Route: 048

REACTIONS (1)
  - HYPERGLYCAEMIA [None]
